FAERS Safety Report 13100745 (Version 1)
Quarter: 2017Q1

REPORT INFORMATION
  Report Type: Spontaneous
  Country: MX (occurrence: MX)
  Receive Date: 20170110
  Receipt Date: 20170110
  Transmission Date: 20170428
  Serious: Yes (Other)
  Sender: FDA-Public Use
  Company Number: MX-IPSEN BIOPHARMACEUTICALS, INC.-2017-00140

PATIENT
  Age: 35 Year
  Sex: Male
  Weight: 76 kg

DRUGS (2)
  1. DYSPORT [Suspect]
     Active Substance: ABOBOTULINUMTOXINA
     Indication: SKIN WRINKLING
     Dosage: 50 UNITS
     Route: 058
     Dates: start: 20161228, end: 20161228
  2. DYSPORT [Suspect]
     Active Substance: ABOBOTULINUMTOXINA
     Indication: SKIN WRINKLING
     Dosage: 30 UNITS
     Route: 058
     Dates: start: 20160201, end: 20160201

REACTIONS (7)
  - Wrong technique in product usage process [Unknown]
  - Injection site inflammation [Recovering/Resolving]
  - Injection site nodule [Recovering/Resolving]
  - Injection site erythema [Unknown]
  - Incorrect route of drug administration [Unknown]
  - Injection site pain [Unknown]
  - Product preparation error [Unknown]

NARRATIVE: CASE EVENT DATE: 20161228
